FAERS Safety Report 18437374 (Version 3)
Quarter: 2021Q4

REPORT INFORMATION
  Report Type: Spontaneous
  Country: HR (occurrence: HR)
  Receive Date: 20201028
  Receipt Date: 20211201
  Transmission Date: 20220303
  Serious: Yes (Other)
  Sender: FDA-Public Use
  Company Number: HR-AMGEN-HRVSP2020173511

PATIENT
  Age: 44 Year
  Sex: Female

DRUGS (4)
  1. VECTIBIX [Suspect]
     Active Substance: PANITUMUMAB
     Indication: Colorectal cancer metastatic
     Dosage: 6 MILLIGRAM/KILOGRAM, Q2WK
     Route: 042
     Dates: start: 202003
  2. LEUCOVORIN [Suspect]
     Active Substance: LEUCOVORIN
     Indication: Colorectal cancer metastatic
     Dosage: UNK
     Route: 065
     Dates: start: 202003, end: 202008
  3. FLUOROURACIL [Suspect]
     Active Substance: FLUOROURACIL
     Indication: Colorectal cancer metastatic
     Dosage: UNK
     Route: 065
     Dates: start: 202003
  4. OXALIPLATIN [Suspect]
     Active Substance: OXALIPLATIN
     Indication: Colorectal cancer metastatic
     Dosage: UNK
     Route: 065
     Dates: start: 202003, end: 202008

REACTIONS (2)
  - Neurotoxicity [Recovered/Resolved]
  - Rash pustular [Recovered/Resolved]

NARRATIVE: CASE EVENT DATE: 20200401
